FAERS Safety Report 8273875-6 (Version None)
Quarter: 2012Q2

REPORT INFORMATION
  Report Type: 
  Country: None (occurrence: None)
  Receive Date: 20120406
  Receipt Date: 20120406
  Transmission Date: 20120825
  Serious: Yes (Life-Threatening, Other)
  Sender: FDA-Public Use
  Company Number: None

PATIENT
  Sex: Female
  Weight: 122.7 kg

DRUGS (1)
  1. PREDNISONE [Suspect]
     Indication: URTICARIA
     Dosage: 20MG SEE NOTE ORAL
     Route: 048
     Dates: start: 20120305, end: 20120313

REACTIONS (10)
  - HYPOAESTHESIA [None]
  - DYSPNOEA [None]
  - TACHYCARDIA [None]
  - HYPERTENSION [None]
  - PARAESTHESIA [None]
  - DYSKINESIA [None]
  - DIZZINESS [None]
  - SKIN WARM [None]
  - BLOOD GLUCOSE INCREASED [None]
  - DIABETIC NEUROPATHY [None]
